FAERS Safety Report 25252688 (Version 3)
Quarter: 2025Q2

REPORT INFORMATION
  Report Type: Spontaneous
  Country: JP (occurrence: JP)
  Receive Date: 20250429
  Receipt Date: 20250520
  Transmission Date: 20250716
  Serious: Yes (Hospitalization, Other)
  Sender: BRISTOL-MYERS SQUIBB COMPANY
  Company Number: JP-BRISTOL-MYERS SQUIBB COMPANY-2025-059652

PATIENT
  Age: 69 Year
  Sex: Male
  Weight: 54.4 kg

DRUGS (16)
  1. YERVOY [Suspect]
     Active Substance: IPILIMUMAB
     Indication: Lung squamous cell carcinoma recurrent
     Route: 041
     Dates: start: 20241024, end: 20241024
  2. YERVOY [Suspect]
     Active Substance: IPILIMUMAB
     Route: 041
     Dates: start: 20241205, end: 20241205
  3. YERVOY [Suspect]
     Active Substance: IPILIMUMAB
     Route: 041
     Dates: end: 202501
  4. OPDIVO [Suspect]
     Active Substance: NIVOLUMAB
     Indication: Lung squamous cell carcinoma recurrent
     Route: 041
     Dates: start: 20241024, end: 20241024
  5. OPDIVO [Suspect]
     Active Substance: NIVOLUMAB
     Route: 041
     Dates: start: 20241024, end: 20241024
  6. OPDIVO [Suspect]
     Active Substance: NIVOLUMAB
     Route: 041
     Dates: start: 20241114, end: 20241114
  7. OPDIVO [Suspect]
     Active Substance: NIVOLUMAB
     Route: 041
     Dates: start: 20241205, end: 20241205
  8. OPDIVO [Suspect]
     Active Substance: NIVOLUMAB
     Route: 041
     Dates: start: 20241114, end: 20241114
  9. OPDIVO [Suspect]
     Active Substance: NIVOLUMAB
     Route: 041
     Dates: start: 20241205, end: 20241205
  10. OPDIVO [Suspect]
     Active Substance: NIVOLUMAB
     Route: 041
     Dates: end: 20241226
  11. EDOXABAN TOSYLATE [Concomitant]
     Active Substance: EDOXABAN TOSYLATE
     Indication: Product used for unknown indication
     Route: 048
  12. SENNOSIDES A AND B [Concomitant]
     Active Substance: SENNOSIDES A AND B
     Indication: Product used for unknown indication
     Route: 048
  13. URSO [Concomitant]
     Active Substance: URSODIOL
     Indication: Product used for unknown indication
     Route: 048
  14. TRAMCET [Concomitant]
     Active Substance: ACETAMINOPHEN\TRAMADOL
     Indication: Product used for unknown indication
     Route: 048
  15. OXYCODONE HYDROCHLORIDE [Concomitant]
     Active Substance: OXYCODONE HYDROCHLORIDE
     Indication: Product used for unknown indication
     Route: 048
  16. OXYCODONE [Concomitant]
     Active Substance: OXYCODONE
     Indication: Product used for unknown indication
     Route: 048

REACTIONS (14)
  - Blood creatine phosphokinase increased [Unknown]
  - Hypothyroidism [Unknown]
  - Non-small cell lung cancer [Unknown]
  - Adrenal insufficiency [Recovered/Resolved]
  - Myositis [Unknown]
  - Somnolence [Unknown]
  - Pneumonia [Recovered/Resolved]
  - Renal impairment [Unknown]
  - Dehydration [Unknown]
  - Cancer pain [Unknown]
  - Condition aggravated [Unknown]
  - Cognitive disorder [Recovered/Resolved]
  - Performance status decreased [Recovered/Resolved]
  - Immune-mediated thyroiditis [Not Recovered/Not Resolved]

NARRATIVE: CASE EVENT DATE: 20241114
